FAERS Safety Report 15014108 (Version 2)
Quarter: 2018Q3

REPORT INFORMATION
  Report Type: Spontaneous
  Country: BE (occurrence: BE)
  Receive Date: 20180615
  Receipt Date: 20180910
  Transmission Date: 20181010
  Serious: Yes (Death, Other)
  Sender: FDA-Public Use
  Company Number: BE-BRISTOL-MYERS SQUIBB COMPANY-BMS-2018-055411

PATIENT
  Age: 58 Year
  Sex: Female

DRUGS (1)
  1. NIVOLUMAB [Suspect]
     Active Substance: NIVOLUMAB
     Indication: NON-SMALL CELL LUNG CANCER
     Dosage: UNK
     Route: 065

REACTIONS (3)
  - Malignant neoplasm progression [Unknown]
  - Death [Fatal]
  - Pneumonitis [Unknown]
